FAERS Safety Report 18104110 (Version 1)
Quarter: 2020Q3

REPORT INFORMATION
  Report Type: Spontaneous
  Country: US (occurrence: US)
  Receive Date: 20200801
  Receipt Date: 20200801
  Transmission Date: 20201103
  Serious: Yes (Other)
  Sender: FDA-Public Use
  Company Number: None

PATIENT
  Age: 50 Year
  Sex: Female
  Weight: 63 kg

DRUGS (4)
  1. ESTRADIOL TRANSDERMAL SYSTEM [Concomitant]
     Active Substance: ESTRADIOL
  2. ALBUTEROL SULFATE INHALATION AEROSOL 90 MCG PER ACTUATION [Suspect]
     Active Substance: ALBUTEROL SULFATE
     Indication: ASTHMA
     Dosage: ?          OTHER STRENGTH:MCG;QUANTITY:1 INHALATION(S);?
     Route: 055
     Dates: start: 20200715, end: 20200801
  3. ZOMIG [Concomitant]
     Active Substance: ZOLMITRIPTAN
  4. ALBUTEROL RESCUE INHALER [Concomitant]

REACTIONS (7)
  - Asthma [None]
  - Product complaint [None]
  - Device difficult to use [None]
  - Device delivery system issue [None]
  - Intentional device use issue [None]
  - Device ineffective [None]
  - Product formulation issue [None]

NARRATIVE: CASE EVENT DATE: 20200801
